FAERS Safety Report 16168820 (Version 3)
Quarter: 2019Q2

REPORT INFORMATION
  Report Type: Spontaneous
  Country: US (occurrence: US)
  Receive Date: 20190408
  Receipt Date: 20190506
  Transmission Date: 20190711
  Serious: No
  Sender: FDA-Public Use
  Company Number: US-LUNDBECK-DKLU2064221

PATIENT
  Age: 69 Year
  Sex: Female
  Weight: 72 kg

DRUGS (2)
  1. NORTHERA [Suspect]
     Active Substance: DROXIDOPA
     Indication: ORTHOSTATIC HYPOTENSION
     Route: 048
     Dates: start: 20180501
  2. NORTHERA [Suspect]
     Active Substance: DROXIDOPA
     Route: 048
     Dates: start: 201711

REACTIONS (2)
  - Viral infection [Not Recovered/Not Resolved]
  - Product dose omission [Unknown]

NARRATIVE: CASE EVENT DATE: 201904
